FAERS Safety Report 21801398 (Version 1)
Quarter: 2022Q4

REPORT INFORMATION
  Report Type: Spontaneous
  Country: US (occurrence: None)
  Receive Date: 20221230
  Receipt Date: 20221230
  Transmission Date: 20230112
  Serious: Yes (Death)
  Sender: FDA-Public Use
  Company Number: None

PATIENT
  Age: 36 Year
  Sex: Male
  Weight: 90 kg

DRUGS (2)
  1. KAVA [Suspect]
     Active Substance: PIPER METHYSTICUM ROOT
     Indication: Asthenia
     Dosage: OTHER QUANTITY : 1 CAPSULE(S);?FREQUENCY : DAILY;?
     Route: 048
     Dates: start: 20200201, end: 20210728
  2. HERBALS\MITRAGYNINE [Suspect]
     Active Substance: HERBALS\MITRAGYNINE

REACTIONS (13)
  - Abnormal behaviour [None]
  - Unevaluable event [None]
  - Irritability [None]
  - Thinking abnormal [None]
  - Sleep disorder [None]
  - Weight decreased [None]
  - Chest pain [None]
  - Incorrect dose administered [None]
  - Personality change [None]
  - Road traffic accident [None]
  - Drug dependence [None]
  - Drug tolerance [None]
  - Cardiac arrest [None]

NARRATIVE: CASE EVENT DATE: 20210728
